FAERS Safety Report 4265647-4 (Version None)
Quarter: 2004Q1

REPORT INFORMATION
  Report Type: 
  Country: None (occurrence: None)
  Receive Date: 20040107
  Receipt Date: 20031119
  Transmission Date: 20041129
  Serious: Yes (Hospitalization)
  Sender: FDA-Public Use
  Company Number: 200311370JP

PATIENT
  Age: 70 Year
  Sex: Male
  Weight: 60.3 kg

DRUGS (10)
  1. TAXOTERE [Suspect]
     Indication: HYPOPHARYNGEAL CANCER
     Route: 013
     Dates: start: 20021112, end: 20021112
  2. RADIATION THERAPY [Suspect]
     Indication: HYPOPHARYNGEAL CANCER
     Dates: start: 20021105, end: 20021227
  3. RANDA [Suspect]
     Indication: HYPOPHARYNGEAL CANCER
     Route: 041
     Dates: start: 20021113, end: 20021113
  4. FLUOROURACIL [Suspect]
     Indication: HYPOPHARYNGEAL CANCER
     Route: 041
     Dates: start: 20021113, end: 20021117
  5. FOSMICIN [Concomitant]
     Indication: RENAL DISORDER
     Route: 041
     Dates: start: 20021113, end: 20021119
  6. MIRACLID [Concomitant]
     Indication: RENAL DISORDER
     Route: 041
     Dates: start: 20021113, end: 20021114
  7. DECADRON [Concomitant]
     Indication: HYPERSENSITIVITY
     Route: 041
     Dates: start: 20021111, end: 20021112
  8. DECADRON [Concomitant]
     Indication: PROPHYLAXIS
     Route: 041
     Dates: start: 20021111, end: 20021112
  9. HYDROCORTONE [Concomitant]
     Route: 013
     Dates: start: 20021112, end: 20021112
  10. SEROTONE [Concomitant]
     Indication: VOMITING
     Dosage: DOSE: 1A
     Route: 041
     Dates: start: 20021113, end: 20021113

REACTIONS (15)
  - BLOOD ALKALINE PHOSPHATASE INCREASED [None]
  - BLOOD LACTATE DEHYDROGENASE INCREASED [None]
  - BLOOD POTASSIUM DECREASED [None]
  - BLOOD PRESSURE INCREASED [None]
  - DIZZINESS [None]
  - HAEMATOCRIT DECREASED [None]
  - HAEMOGLOBIN DECREASED [None]
  - INAPPROPRIATE ANTIDIURETIC HORMONE SECRETION [None]
  - MALAISE [None]
  - MARKEDLY REDUCED DIETARY INTAKE [None]
  - NAUSEA [None]
  - PLATELET COUNT DECREASED [None]
  - RED BLOOD CELL COUNT DECREASED [None]
  - VOMITING [None]
  - WHITE BLOOD CELL COUNT DECREASED [None]
